FAERS Safety Report 16024655 (Version 1)
Quarter: 2019Q1

REPORT INFORMATION
  Report Type: Spontaneous
  Country: ES (occurrence: ES)
  Receive Date: 20190301
  Receipt Date: 20190301
  Transmission Date: 20190418
  Serious: Yes (Hospitalization, Other)
  Sender: FDA-Public Use
  Company Number: ES-MYLANLABS-2019M1018380

PATIENT
  Age: 76 Year
  Sex: Male

DRUGS (3)
  1. DILTIAZEM. [Suspect]
     Active Substance: DILTIAZEM
     Indication: HYPERTENSION
  2. NIVOLUMAB [Suspect]
     Active Substance: NIVOLUMAB
     Indication: NON-SMALL CELL LUNG CANCER
     Dosage: 240 MILLIGRAM, BIWEEKLY
     Route: 042
     Dates: start: 20170920, end: 20180605
  3. DILTIAZEM. [Suspect]
     Active Substance: DILTIAZEM
     Indication: ATRIAL FIBRILLATION
     Dosage: 120 MILLIGRAM, QD
     Route: 048
     Dates: start: 20180412, end: 20180615

REACTIONS (3)
  - Vitiligo [Not Recovered/Not Resolved]
  - Bradycardia [Recovered/Resolved]
  - Hypothyroidism [Recovered/Resolved]

NARRATIVE: CASE EVENT DATE: 20180227
